FAERS Safety Report 9658252 (Version 1)
Quarter: 2013Q4

REPORT INFORMATION
  Report Type: Spontaneous
  Country: US (occurrence: US)
  Receive Date: 20131030
  Receipt Date: 20131030
  Transmission Date: 20140711
  Serious: Yes (Other)
  Sender: FDA-Public Use
  Company Number: US-NAPPMUNDI-USA-2012-0081932

PATIENT
  Age: 46 Year
  Sex: Male

DRUGS (2)
  1. OXYCODONE HYDROCHLORIDE (SIMILAR TO NDA 22-272) [Suspect]
     Indication: PRODUCT USED FOR UNKNOWN INDICATION
  2. ALCOHOL [Suspect]
     Indication: SUBSTANCE ABUSE

REACTIONS (6)
  - Overdose [Unknown]
  - Substance abuse [Unknown]
  - Aggression [Unknown]
  - Ocular hyperaemia [Unknown]
  - Impaired driving ability [Unknown]
  - Feeling abnormal [Unknown]
